FAERS Safety Report 25298630 (Version 1)
Quarter: 2025Q2

REPORT INFORMATION
  Report Type: Spontaneous
  Country: US (occurrence: US)
  Receive Date: 20250512
  Receipt Date: 20250512
  Transmission Date: 20250716
  Serious: No
  Sender: TRIS PHARMA, INC.
  Company Number: US-TRIS PHARMA, INC.-25US011954

PATIENT

DRUGS (2)
  1. DYANAVEL XR [Suspect]
     Active Substance: AMPHETAMINE
     Indication: Attention deficit hyperactivity disorder
  2. DYANAVEL XR [Suspect]
     Active Substance: AMPHETAMINE

REACTIONS (4)
  - Tongue movement disturbance [Unknown]
  - Oral discomfort [Unknown]
  - Dyskinesia [Unknown]
  - Drug ineffective [Unknown]
